FAERS Safety Report 9785611 (Version 3)
Quarter: 2014Q2

REPORT INFORMATION
  Report Type: Spontaneous
  Country: US (occurrence: US)
  Receive Date: 20131227
  Receipt Date: 20140609
  Transmission Date: 20141212
  Serious: Yes (Other)
  Sender: FDA-Public Use
  Company Number: US-BAYER-2013-155754

PATIENT
  Age: 26 Year
  Sex: Female
  Weight: 52.15 kg

DRUGS (1)
  1. MIRENA [Suspect]
     Dosage: 20 MCG/24HR, CONT
     Route: 015
     Dates: start: 200807, end: 201112

REACTIONS (5)
  - Uterine perforation [None]
  - Genital haemorrhage [None]
  - Injury [None]
  - Abdominal pain [None]
  - Emotional distress [None]
